FAERS Safety Report 12449996 (Version 2)
Quarter: 2016Q4

REPORT INFORMATION
  Report Type: Report from Study
  Country: JP (occurrence: JP)
  Receive Date: 20160609
  Receipt Date: 20161128
  Transmission Date: 20170207
  Serious: Yes (Hospitalization)
  Sender: FDA-Public Use
  Company Number: JP-UCBSA-2016020655

PATIENT
  Age: 61 Year
  Sex: Female
  Weight: 53.5 kg

DRUGS (11)
  1. METOLATE [Suspect]
     Active Substance: METHOTREXATE
     Dosage: 4 MG, WEEKLY (QW)
     Route: 048
     Dates: start: 20150817, end: 20160118
  2. PREDONINE [Suspect]
     Active Substance: PREDNISOLONE\PREDNISOLONE ACETATE\PREDNISOLONE SODIUM SUCCINATE
     Dosage: DAILY: 5 MG
     Route: 048
     Dates: start: 20141210, end: 20150215
  3. CERTOLIZUMAB PEGOL RA [Suspect]
     Active Substance: CERTOLIZUMAB PEGOL
     Dosage: 200 MG, EV 2 WEEKS(QOW)
     Route: 058
     Dates: start: 20141225, end: 20160104
  4. PREDONINE [Suspect]
     Active Substance: PREDNISOLONE\PREDNISOLONE ACETATE\PREDNISOLONE SODIUM SUCCINATE
     Indication: RHEUMATOID ARTHRITIS
     Dosage: DAILY: 7.5 MG
     Route: 048
     Dates: start: 20141209, end: 201412
  5. METOLATE [Suspect]
     Active Substance: METHOTREXATE
     Indication: RHEUMATOID ARTHRITIS
     Dosage: 6 MG, WEEKLY (QW)
     Route: 048
     Dates: start: 20150216, end: 20150816
  6. PREDONINE [Suspect]
     Active Substance: PREDNISOLONE\PREDNISOLONE ACETATE\PREDNISOLONE SODIUM SUCCINATE
     Dosage: DAILY: 2 MG
     Route: 048
     Dates: start: 20150714, end: 20160118
  7. DICLOFENAC SODIUM. [Concomitant]
     Active Substance: DICLOFENAC SODIUM
     Dosage: DAILY: 37.5 MG
     Route: 048
     Dates: start: 20160222
  8. PREDONINE [Suspect]
     Active Substance: PREDNISOLONE\PREDNISOLONE ACETATE\PREDNISOLONE SODIUM SUCCINATE
     Dosage: DAILY: 4 MG
     Route: 048
     Dates: start: 20150216, end: 20150518
  9. PREDONINE [Suspect]
     Active Substance: PREDNISOLONE\PREDNISOLONE ACETATE\PREDNISOLONE SODIUM SUCCINATE
     Dosage: DAILY: 3 MG
     Route: 048
     Dates: start: 20150519, end: 20150713
  10. DICLOFENAC SODIUM. [Concomitant]
     Active Substance: DICLOFENAC SODIUM
     Indication: RHEUMATOID ARTHRITIS
     Dosage: DAILY: 37.5 MG
     Route: 048
     Dates: end: 20160118
  11. CERTOLIZUMAB PEGOL RA [Suspect]
     Active Substance: CERTOLIZUMAB PEGOL
     Indication: RHEUMATOID ARTHRITIS
     Dosage: 400 MG, EV 2 WEEKS(QOW)
     Route: 058
     Dates: start: 20141113, end: 20141211

REACTIONS (1)
  - Mediastinitis [Recovering/Resolving]

NARRATIVE: CASE EVENT DATE: 20160118
